FAERS Safety Report 14386931 (Version 2)
Quarter: 2018Q2

REPORT INFORMATION
  Report Type: Spontaneous
  Country: US (occurrence: US)
  Receive Date: 20180115
  Receipt Date: 20180601
  Transmission Date: 20180711
  Serious: Yes (Other)
  Sender: FDA-Public Use
  Company Number: US-SA-2017SA152338

PATIENT
  Age: 55 Year
  Sex: Female
  Weight: 104.32 kg

DRUGS (6)
  1. TAXOTERE [Suspect]
     Active Substance: DOCETAXEL
     Indication: BREAST CANCER FEMALE
     Dosage: 200 MG,Q3W
     Route: 051
     Dates: start: 20071105, end: 20071105
  2. CYCLOPHOSPHAMIDE. [Concomitant]
     Active Substance: CYCLOPHOSPHAMIDE
  3. METOPROLOL. [Concomitant]
     Active Substance: METOPROLOL
     Dosage: UNK UNK,UNK
     Route: 065
     Dates: start: 20140319
  4. TAXOTERE [Suspect]
     Active Substance: DOCETAXEL
     Dosage: 200 MG,Q3W
     Route: 051
     Dates: start: 20071228, end: 20071228
  5. FLUOROURACIL. [Concomitant]
     Active Substance: FLUOROURACIL
  6. EPIRUBICIN [Concomitant]
     Active Substance: EPIRUBICIN

REACTIONS (1)
  - Alopecia [Recovering/Resolving]

NARRATIVE: CASE EVENT DATE: 200807
